FAERS Safety Report 26186205 (Version 1)
Quarter: 2025Q4

REPORT INFORMATION
  Report Type: Spontaneous
  Country: US (occurrence: None)
  Receive Date: 20251221
  Receipt Date: 20251221
  Transmission Date: 20260118
  Serious: Yes (Other)
  Sender: FDA-CTU
  Company Number: None

PATIENT
  Age: 29 Year
  Sex: Female
  Weight: 67.05 kg

DRUGS (4)
  1. EMGALITY [Suspect]
     Active Substance: GALCANEZUMAB-GNLM
     Indication: Migraine
     Dosage: OTHER FREQUENCY : MONTHLY;
     Route: 058
  2. METOPROLOL [Concomitant]
     Active Substance: METOPROLOL
  3. EMGALITY [Concomitant]
     Active Substance: GALCANEZUMAB-GNLM
  4. IBUPROFEN [Concomitant]
     Active Substance: IBUPROFEN

REACTIONS (4)
  - Menstrual disorder [None]
  - Premenstrual pain [None]
  - Polycystic ovaries [None]
  - Ovarian cyst ruptured [None]

NARRATIVE: CASE EVENT DATE: 20251218
